FAERS Safety Report 4335622-X (Version None)
Quarter: 2004Q2

REPORT INFORMATION
  Report Type: 
  Country: None (occurrence: None)
  Receive Date: 20040409
  Receipt Date: 20030411
  Transmission Date: 20050107
  Serious: Yes (Hospitalization, Disabling, Other)
  Sender: FDA-Public Use
  Company Number: US-MERCK-0304USA01412

PATIENT
  Age: 65 Year
  Sex: Male
  Weight: 95 kg

DRUGS (11)
  1. ASPIRIN [Concomitant]
     Route: 065
     Dates: start: 20000301
  2. PLAVIX [Concomitant]
     Indication: PROPHYLAXIS
     Route: 065
     Dates: start: 20000301
  3. LANOXIN [Concomitant]
     Indication: HEART RATE IRREGULAR
     Route: 065
     Dates: start: 19990706, end: 20000301
  4. DIGOXIN [Concomitant]
     Route: 065
     Dates: start: 20000407
  5. HYZAAR [Concomitant]
     Indication: HYPERTENSION
     Route: 065
     Dates: start: 20000515, end: 20000501
  6. HYZAAR [Concomitant]
     Route: 048
     Dates: start: 20000501
  7. VIOXX [Suspect]
     Indication: ARTHRALGIA
     Route: 048
     Dates: start: 19990712, end: 20000501
  8. CALAN [Concomitant]
     Indication: HYPERTENSION
     Route: 065
  9. COUMADIN [Concomitant]
     Indication: PROPHYLAXIS
     Route: 048
     Dates: start: 20000301, end: 20030101
  10. COUMADIN [Concomitant]
     Route: 048
     Dates: start: 20000301, end: 20030101
  11. COUMADIN [Concomitant]
     Route: 048
     Dates: start: 20000501

REACTIONS (38)
  - AORTIC VALVE SCLEROSIS [None]
  - ARTHRALGIA [None]
  - ATRIAL FIBRILLATION [None]
  - BENIGN PROSTATIC HYPERPLASIA [None]
  - CARDIAC FAILURE CONGESTIVE [None]
  - CARDIAC MURMUR [None]
  - CAROTID ARTERY DISEASE [None]
  - CAROTID ARTERY STENOSIS [None]
  - CEREBELLAR INFARCTION [None]
  - CEREBROVASCULAR ACCIDENT [None]
  - CHRONIC OBSTRUCTIVE AIRWAYS DISEASE [None]
  - CORONARY ARTERY DISEASE [None]
  - CORONARY ARTERY STENOSIS [None]
  - CRACKLES LUNG [None]
  - DIASTOLIC DYSFUNCTION [None]
  - DILATATION ATRIAL [None]
  - DIVERTICULITIS [None]
  - DIVERTICULUM [None]
  - DIZZINESS [None]
  - INJURY [None]
  - ISCHAEMIC STROKE [None]
  - LOCALISED OSTEOARTHRITIS [None]
  - MITRAL VALVE INCOMPETENCE [None]
  - MYOCARDIAL INFARCTION [None]
  - PALPITATIONS [None]
  - PLEURAL EFFUSION [None]
  - PULMONARY CONGESTION [None]
  - PULMONARY FIBROSIS [None]
  - ROTATOR CUFF SYNDROME [None]
  - SICK SINUS SYNDROME [None]
  - SLEEP APNOEA SYNDROME [None]
  - SYNCOPE [None]
  - TRICUSPID VALVE INCOMPETENCE [None]
  - URINARY TRACT INFECTION [None]
  - VENTRICULAR HYPERTROPHY [None]
  - VENTRICULAR HYPOKINESIA [None]
  - VERTIGO [None]
  - WHEEZING [None]
